FAERS Safety Report 26057577 (Version 1)
Quarter: 2025Q4

REPORT INFORMATION
  Report Type: Spontaneous
  Country: US (occurrence: None)
  Receive Date: 20251118
  Receipt Date: 20251118
  Transmission Date: 20260119
  Serious: No
  Sender: UCB
  Company Number: US-UCBSA-2025032758

PATIENT
  Age: 5 Year

DRUGS (18)
  1. LEVETIRACETAM [Suspect]
     Active Substance: LEVETIRACETAM
     Indication: Status epilepticus
     Dosage: UNK
  2. LEVETIRACETAM [Suspect]
     Active Substance: LEVETIRACETAM
     Indication: Off label use
  3. LACOSAMIDE [Suspect]
     Active Substance: LACOSAMIDE
     Indication: Status epilepticus
     Dosage: UNK
  4. LACOSAMIDE [Suspect]
     Active Substance: LACOSAMIDE
     Indication: Off label use
  5. BRIVARACETAM [Suspect]
     Active Substance: BRIVARACETAM
     Indication: Status epilepticus
     Dosage: UNK
  6. BRIVARACETAM [Suspect]
     Active Substance: BRIVARACETAM
     Indication: Off label use
  7. FOSPHENYTOIN [Concomitant]
     Active Substance: FOSPHENYTOIN
     Indication: Status epilepticus
     Dosage: UNK
  8. PENTOBARBITAL [Concomitant]
     Active Substance: PENTOBARBITAL
     Indication: Status epilepticus
     Dosage: UNK
  9. KETAMINE [Concomitant]
     Active Substance: KETAMINE
     Indication: Status epilepticus
     Dosage: UNK
  10. METHYLPREDNISOLONE [Concomitant]
     Active Substance: METHYLPREDNISOLONE
     Indication: Febrile infection-related epilepsy syndrome
     Dosage: UNK
  11. HUMAN IMMUNOGLOBULIN G [Concomitant]
     Active Substance: HUMAN IMMUNOGLOBULIN G
     Indication: Febrile infection-related epilepsy syndrome
     Dosage: UNK
  12. PHENOBARBITAL [Concomitant]
     Active Substance: PHENOBARBITAL
     Indication: Seizure
     Dosage: UNK
  13. CLOBAZAM [Concomitant]
     Active Substance: CLOBAZAM
     Indication: Seizure
     Dosage: UNK
  14. CENOBAMATE [Concomitant]
     Active Substance: CENOBAMATE
     Indication: Seizure
     Dosage: UNK
  15. PERAMPANEL [Concomitant]
     Active Substance: PERAMPANEL
     Indication: Seizure
     Dosage: UNK
  16. ANAKINRA [Concomitant]
     Active Substance: ANAKINRA
     Indication: Febrile infection-related epilepsy syndrome
     Dosage: UNK
  17. TOCILIZUMAB [Concomitant]
     Active Substance: TOCILIZUMAB
     Indication: Febrile infection-related epilepsy syndrome
     Dosage: UNK
  18. DEXAMETHASONE [Concomitant]
     Active Substance: DEXAMETHASONE
     Indication: Febrile infection-related epilepsy syndrome
     Dosage: UNK

REACTIONS (1)
  - No adverse event [Unknown]
